FAERS Safety Report 14122780 (Version 3)
Quarter: 2017Q4

REPORT INFORMATION
  Report Type: Report from Study
  Country: None (occurrence: BE)
  Receive Date: 20171024
  Receipt Date: 20171115
  Transmission Date: 20180321
  Serious: Yes (Hospitalization)
  Sender: FDA-Public Use
  Company Number: BE-ABBVIE-17K-013-2136149-00

PATIENT
  Age: 59 Year
  Sex: Male

DRUGS (10)
  1. DUODOPA [Suspect]
     Active Substance: CARBIDOPA\LEVODOPA
     Dosage: AM: 9ML; CD: 4.4ML/H FOR 16HRS; EDA: 3ML
     Route: 050
     Dates: start: 20171024, end: 20171026
  2. PARACETAMOL [Concomitant]
     Active Substance: ACETAMINOPHEN
     Indication: PRODUCT USED FOR UNKNOWN INDICATION
  3. ASAFLOW [Concomitant]
     Active Substance: ASPIRIN
     Indication: PRODUCT USED FOR UNKNOWN INDICATION
  4. DEPAKINE CHRONO [Concomitant]
     Active Substance: VALPROATE SODIUM
     Indication: PRODUCT USED FOR UNKNOWN INDICATION
  5. DUODOPA [Suspect]
     Active Substance: CARBIDOPA\LEVODOPA
     Indication: PARKINSON^S DISEASE
     Dosage: AM: 9ML; CD: 4.2 ML/H FOR 16HRS; EDA: 3ML
     Route: 050
     Dates: start: 20171009, end: 20171011
  6. BACLOFEN. [Concomitant]
     Active Substance: BACLOFEN
     Indication: PRODUCT USED FOR UNKNOWN INDICATION
     Dosage: 1 UNIT OF 10MG + 1 UNIT OF 25MG IN THE EVENING
  7. DUODOPA [Suspect]
     Active Substance: CARBIDOPA\LEVODOPA
     Dosage: AM: 9ML; CD: 4.4 ML/H FOR 16HRS; EDA: 3ML
     Route: 050
     Dates: start: 20171011, end: 20171020
  8. DUODOPA [Suspect]
     Active Substance: CARBIDOPA\LEVODOPA
     Route: 050
     Dates: start: 2017
  9. DUODOPA [Suspect]
     Active Substance: CARBIDOPA\LEVODOPA
     Route: 050
     Dates: start: 20171020, end: 20171024
  10. PANTOMED (PANTOPRAZOLE SODIUM) [Concomitant]
     Active Substance: PANTOPRAZOLE SODIUM
     Indication: PRODUCT USED FOR UNKNOWN INDICATION

REACTIONS (11)
  - C-reactive protein increased [Recovered/Resolved]
  - Abdominal pain [Recovering/Resolving]
  - Pulmonary embolism [Unknown]
  - Stoma site pain [Unknown]
  - Abdominal distension [Unknown]
  - Device breakage [Unknown]
  - Pneumonia aspiration [Unknown]
  - Body temperature increased [Recovered/Resolved]
  - Device dislocation [Recovered/Resolved]
  - Intentional medical device removal by patient [Recovered/Resolved]
  - Incorrect route of drug administration [Unknown]

NARRATIVE: CASE EVENT DATE: 2017
